FAERS Safety Report 9060356 (Version 4)
Quarter: 2014Q1

REPORT INFORMATION
  Report Type: Spontaneous
  Country: US (occurrence: US)
  Receive Date: 20130212
  Receipt Date: 20140110
  Transmission Date: 20141002
  Serious: Yes (Hospitalization, Other)
  Sender: FDA-Public Use
  Company Number: US-009507513-1302USA004395

PATIENT
  Sex: Female

DRUGS (6)
  1. FOSAMAX [Suspect]
     Indication: OSTEOPOROSIS PROPHYLAXIS
     Dosage: 35 MG, UNK
     Route: 048
     Dates: start: 20041207, end: 200802
  2. ALENDRONATE SODIUM [Suspect]
     Indication: OSTEOPOROSIS PROPHYLAXIS
     Dosage: 35 MG, UNK
     Route: 048
     Dates: start: 20080218
  3. ALENDRONATE SODIUM [Suspect]
     Dosage: 70 MG, UNK
     Route: 048
     Dates: end: 201102
  4. VITAMINS (UNSPECIFIED) [Concomitant]
     Dosage: 1 DF, UNK
     Dates: start: 2004
  5. GLUCOSAMINE [Concomitant]
     Dosage: 750 MG, QD
     Dates: start: 2004
  6. CHONDROITIN [Concomitant]
     Dosage: 600 MG, QD
     Dates: start: 2004

REACTIONS (15)
  - Femur fracture [Unknown]
  - Intramedullary rod insertion [Unknown]
  - Knee arthroplasty [Unknown]
  - Nephrolithiasis [Unknown]
  - Lithotripsy [Unknown]
  - Hip arthroplasty [Unknown]
  - Joint dislocation [Unknown]
  - Medical device complication [Unknown]
  - Instillation site infection [Unknown]
  - Local swelling [Recovering/Resolving]
  - Bone graft [Unknown]
  - Bone disorder [Unknown]
  - Procedural haemorrhage [Unknown]
  - Bladder spasm [Unknown]
  - Renal artery stent placement [Unknown]
